FAERS Safety Report 19873135 (Version 1)
Quarter: 2021Q3

REPORT INFORMATION
  Report Type: Spontaneous
  Country: CN (occurrence: CN)
  Receive Date: 20210922
  Receipt Date: 20210922
  Transmission Date: 20211014
  Serious: Yes (Hospitalization)
  Sender: FDA-Public Use
  Company Number: CN-SA-2021SA312275

PATIENT
  Age: 50 Year
  Sex: Male

DRUGS (5)
  1. MEMANTINE [MEMANTINE HYDROCHLORIDE] [Concomitant]
     Active Substance: MEMANTINE HYDROCHLORIDE
     Indication: EPILEPSY
     Dosage: 5 MG, BID (NASAL FEEDING)
     Route: 045
     Dates: start: 20210803, end: 20210817
  2. LEVETIRACETAM. [Concomitant]
     Active Substance: LEVETIRACETAM
     Indication: CEREBRAL HAEMORRHAGE
     Dosage: 1 G, BID (NASAL FEEDING)
     Route: 045
     Dates: start: 20210803, end: 20210819
  3. ZOLPIDEM TARTRATE. [Suspect]
     Active Substance: ZOLPIDEM TARTRATE
     Indication: COGNITIVE DISORDER
     Dosage: 10 MG, QD (NASAL FEEDING)
     Route: 045
     Dates: start: 20210805, end: 20210808
  4. AMANTADINE HYDROCHLORIDE. [Concomitant]
     Active Substance: AMANTADINE HYDROCHLORIDE
     Dosage: UNK
     Route: 065
     Dates: start: 20210805, end: 20210808
  5. CITALOPRAM HYDROBROMIDE. [Concomitant]
     Active Substance: CITALOPRAM HYDROBROMIDE
     Indication: EPILEPSY
     Dosage: 20 MG, QD (NASAL FEEDING)
     Route: 045
     Dates: start: 20210803, end: 20210824

REACTIONS (1)
  - Muscle rigidity [Recovering/Resolving]

NARRATIVE: CASE EVENT DATE: 20210805
